FAERS Safety Report 21387597 (Version 2)
Quarter: 2023Q4

REPORT INFORMATION
  Report Type: Spontaneous
  Country: CA (occurrence: CA)
  Receive Date: 20220928
  Receipt Date: 20231205
  Transmission Date: 20240110
  Serious: Yes (Other)
  Sender: FDA-Public Use
  Company Number: CA-ANIPHARMA-2020-CA-001610

PATIENT
  Age: 57 Year
  Sex: Female

DRUGS (10)
  1. CANDESARTAN CILEXETIL [Suspect]
     Active Substance: CANDESARTAN CILEXETIL
     Indication: Product used for unknown indication
     Dosage: 8 MG DAILY / 8 MG BID
     Route: 048
  2. LYRICA [Concomitant]
     Active Substance: PREGABALIN
     Route: 065
  3. OMALIZUMAB [Suspect]
     Active Substance: OMALIZUMAB
     Dosage: UNKNOWN / 300 MG UNK / 300 MG UNK / 300 MG UNK / 300 MG UNK / UNK / UNK / 300 MG UNK / UNKNOWN / UNK
     Route: 058
  4. PULMICORT TURBUHALER [Concomitant]
     Active Substance: BUDESONIDE
     Dosage: 1 EVERY 1 DAYS
     Route: 065
  5. REACTINE [Concomitant]
     Dosage: 1 EVERY 1 DAYS
     Route: 065
  6. RIVOTRIL [Concomitant]
     Active Substance: CLONAZEPAM
     Route: 065
  7. AMOXICILLIN\CLAVULANATE POTASSIUM [Suspect]
     Active Substance: AMOXICILLIN\CLAVULANATE POTASSIUM
     Dosage: 3 DOSES SPEAD OVER 1 1/2 DAYS
     Route: 065
  8. SINGULAIR [Concomitant]
     Active Substance: MONTELUKAST SODIUM
     Dosage: 1 EVERY 1 DAYS
     Route: 065
  9. SYMBICORT [Concomitant]
     Active Substance: BUDESONIDE\FORMOTEROL FUMARATE DIHYDRATE
     Dosage: 2 EVERY 1 DAY
     Route: 065
  10. ISOPTIN [Concomitant]
     Active Substance: VERAPAMIL HYDROCHLORIDE
     Route: 065

REACTIONS (51)
  - Asthma [Unknown]
  - Fatigue [Unknown]
  - Headache [Unknown]
  - Hypersensitivity [Unknown]
  - Inflammation [Unknown]
  - Influenza [Unknown]
  - Injection site pain [Unknown]
  - Insomnia [Unknown]
  - Lacrimation increased [Unknown]
  - Migraine [Unknown]
  - Mobility decreased [Unknown]
  - Back pain [Unknown]
  - Myalgia [Unknown]
  - Nasal congestion [Unknown]
  - Nasal discharge discolouration [Unknown]
  - Nasal oedema [Unknown]
  - Nasal polyps [Unknown]
  - Nasopharyngitis [Unknown]
  - Nausea [Unknown]
  - Productive cough [Unknown]
  - Pyrexia [Unknown]
  - Respiratory disorder [Unknown]
  - Blood pressure diastolic increased [Unknown]
  - Rhinorrhoea [Unknown]
  - Seasonal allergy [Unknown]
  - Sensitivity to weather change [Unknown]
  - Sinus congestion [Unknown]
  - Sinus disorder [Unknown]
  - Sinus pain [Unknown]
  - Sinus polyp [Unknown]
  - Sinusitis [Unknown]
  - Stress [Unknown]
  - Upper limb fracture [Unknown]
  - Choking sensation [Unknown]
  - Viral infection [Unknown]
  - Vomiting [Unknown]
  - Wrist fracture [Unknown]
  - Chills [Unknown]
  - Discomfort [Unknown]
  - Dizziness [Unknown]
  - Neck pain [Unknown]
  - Nerve compression [Unknown]
  - Osteoarthritis [Unknown]
  - Cough [Unknown]
  - Pain [Unknown]
  - Sleep apnoea syndrome [Unknown]
  - Throat clearing [Unknown]
  - Drug ineffective [Unknown]
  - Dyspnoea [Unknown]
  - Dyspnoea exertional [Unknown]
  - Ear pain [Unknown]

NARRATIVE: CASE EVENT DATE: 20170101
